FAERS Safety Report 13568510 (Version 1)
Quarter: 2017Q2

REPORT INFORMATION
  Report Type: Spontaneous
  Country: US (occurrence: US)
  Receive Date: 20170522
  Receipt Date: 20170522
  Transmission Date: 20170830
  Serious: Yes (Hospitalization)
  Sender: FDA-Public Use
  Company Number: None

PATIENT
  Age: 68 Year
  Sex: Female

DRUGS (17)
  1. CELEBREX [Concomitant]
     Active Substance: CELECOXIB
  2. GLUCOSAMINE [Concomitant]
     Active Substance: GLUCOSAMINE
  3. VITAMIN C [Concomitant]
     Active Substance: ASCORBIC ACID
  4. CALCIUM +D [Concomitant]
     Active Substance: CALCIUM\VITAMIN D
  5. XELJANZ [Suspect]
     Active Substance: TOFACITINIB CITRATE
     Indication: ANKYLOSING SPONDYLITIS
     Route: 048
     Dates: start: 20160311
  6. BAYER LOW [Concomitant]
  7. BROMELAIN [Concomitant]
     Active Substance: BROMELAINS
  8. FOSAMAX [Concomitant]
     Active Substance: ALENDRONATE SODIUM
  9. TRAMADOL. [Concomitant]
     Active Substance: TRAMADOL
  10. CINNAMON. [Concomitant]
     Active Substance: CINNAMON
  11. FISH OIL [Concomitant]
     Active Substance: FISH OIL
  12. FOLIC ACID. [Concomitant]
     Active Substance: FOLIC ACID
  13. METHOTREXATE. [Concomitant]
     Active Substance: METHOTREXATE
  14. SOYA LECITHIN [Concomitant]
     Active Substance: DIETARY SUPPLEMENT
  15. TURMERIC [Concomitant]
     Active Substance: HERBALS\TURMERIC
  16. CYMBALTA [Concomitant]
     Active Substance: DULOXETINE HYDROCHLORIDE
  17. OMEPRAZOLE. [Concomitant]
     Active Substance: OMEPRAZOLE

REACTIONS (2)
  - Hip arthroplasty [None]
  - Drug dose omission [None]

NARRATIVE: CASE EVENT DATE: 20170511
